FAERS Safety Report 21447449 (Version 2)
Quarter: 2022Q4

REPORT INFORMATION
  Report Type: Spontaneous
  Country: US (occurrence: US)
  Receive Date: 20221012
  Receipt Date: 20221108
  Transmission Date: 20230112
  Serious: No
  Sender: FDA-Public Use
  Company Number: US-ALXN-A202212314

PATIENT
  Sex: Female

DRUGS (2)
  1. SOLIRIS [Suspect]
     Active Substance: ECULIZUMAB
     Indication: Myasthenia gravis
     Dosage: 1200 MG, Q2W
     Route: 042
     Dates: start: 202009
  2. ULTOMIRIS [Suspect]
     Active Substance: RAVULIZUMAB-CWVZ
     Indication: Myasthenia gravis
     Dosage: 3300 MG, EVERY 8 WEEKS
     Route: 042
     Dates: start: 202207

REACTIONS (4)
  - Productive cough [Unknown]
  - Off label use [Unknown]
  - Viral infection [Unknown]
  - Pyrexia [Unknown]
